FAERS Safety Report 5206634-9 (Version None)
Quarter: 2007Q1

REPORT INFORMATION
  Report Type: 
  Country: None (occurrence: None)
  Receive Date: 20070109
  Receipt Date: 20061114
  Transmission Date: 20070707
  Serious: Yes (Other)
  Sender: FDA-Public Use
  Company Number: 805#9#2006-00137

PATIENT
  Age: 80 Year
  Sex: Male

DRUGS (10)
  1. ALPROSTADIL [Suspect]
     Indication: THROMBOANGIITIS OBLITERANS
     Dosage: 80 MCG (40 MCG 2 IN 1 DAY (S)) INTRAVENOUS DRIP
     Route: 041
     Dates: start: 20060622, end: 20060706
  2. ABBOKINASE [Suspect]
     Indication: ARTERIAL OCCLUSIVE DISEASE
     Dosage: INTRAVENOUS
     Route: 042
     Dates: start: 20060623, end: 20060627
  3. WARFARIN SODIUM [Suspect]
     Indication: THROMBOANGIITIS OBLITERANS
     Dosage: ORAL
     Route: 048
     Dates: start: 20010301, end: 20060706
  4. MECOBALAMIN (MECOBALAMIN) [Concomitant]
  5. AMITRIPTYLINE HYDROCHLORIDE [Concomitant]
  6. LOXOPROFEN SODIUM (LOXOPROFEN SODIUM) [Concomitant]
  7. FAMOTIDINE [Concomitant]
  8. VALSARTAN [Concomitant]
  9. ASPIRIN [Concomitant]
  10. HEPARIN SODIUM (HEPARIN) [Concomitant]

REACTIONS (2)
  - ARTERIAL OCCLUSIVE DISEASE [None]
  - GASTROINTESTINAL HAEMORRHAGE [None]
